FAERS Safety Report 4597193-2 (Version None)
Quarter: 2005Q1

REPORT INFORMATION
  Report Type: 
  Country: None (occurrence: None)
  Receive Date: 20050301
  Receipt Date: 20050222
  Transmission Date: 20050727
  Serious: Yes (Disabling)
  Sender: FDA-Public Use
  Company Number: GBWYE193010NOV04

PATIENT
  Sex: Female

DRUGS (2)
  1. PREMARIN [Suspect]
     Dosage: SEE IMAGE
     Route: 048
     Dates: start: 20020101, end: 20041030
  2. PREMARIN [Suspect]
     Dosage: SEE IMAGE
     Route: 048
     Dates: start: 20041101

REACTIONS (2)
  - FATIGUE [None]
  - WEIGHT INCREASED [None]
